FAERS Safety Report 7526271-0 (Version None)
Quarter: 2011Q2

REPORT INFORMATION
  Report Type: 
  Country: None (occurrence: None)
  Receive Date: 20110606
  Receipt Date: 20101210
  Transmission Date: 20111010
  Serious: Yes (Other)
  Sender: FDA-Public Use
  Company Number: US-BAYER-201017910NA

PATIENT
  Age: 27 Year
  Sex: Female

DRUGS (24)
  1. TOPAMAX [Concomitant]
  2. AVELOX [Concomitant]
     Dosage: UNK
     Dates: start: 20000101, end: 20100101
  3. CEPHALEXIN [Concomitant]
     Dosage: UNK
     Dates: start: 20000101, end: 20100101
  4. YAZ [Suspect]
     Dosage: AS USED DOSE: UNK
     Route: 048
     Dates: start: 20050418, end: 20090920
  5. BIAXIN [Concomitant]
     Dosage: UNK
     Dates: start: 20000101, end: 20100101
  6. REGLAN [Concomitant]
     Dosage: UNK
     Dates: start: 20050101, end: 20080101
  7. ACIPHEX [Concomitant]
     Dosage: UNK
     Dates: start: 20050101, end: 20080101
  8. MERIDIA [Concomitant]
  9. KETOROLAC TROMETHAMINE [Concomitant]
     Dosage: UNK
     Dates: start: 20010101
  10. NEXIUM [Concomitant]
     Dosage: UNK
     Dates: start: 20050101, end: 20080101
  11. AXID [Concomitant]
     Dosage: UNK
     Dates: start: 20050101, end: 20080101
  12. MEDROXYPROGESTERONE [Concomitant]
     Dosage: UNK
     Dates: start: 20070601
  13. PROMETRIUM [Concomitant]
     Dosage: UNK
     Dates: start: 20070723
  14. DROSPIRENONE AND ETHINYL ESTRADIOL [Suspect]
     Indication: PRODUCT USED FOR UNKNOWN INDICATION
     Dosage: AS USED DOSE: UNK
     Route: 065
     Dates: start: 20050418, end: 20090920
  15. BELLADONNA EXTRACT W/PHENOBARBITONE [Concomitant]
  16. ZITHROMAX [Concomitant]
     Dosage: UNK
     Dates: start: 20000101, end: 20100101
  17. PREVACID [Concomitant]
     Dosage: UNK
     Dates: start: 20050101, end: 20080101
  18. ZANTAC [Concomitant]
     Dosage: UNK
     Dates: start: 20050101, end: 20080101
  19. LEVAQUIN [Concomitant]
  20. YASMIN [Suspect]
     Indication: CONTRACEPTION
     Route: 048
     Dates: start: 20050418, end: 20090920
  21. IMITREX [Concomitant]
  22. MINOCYCLINE HCL [Concomitant]
     Dosage: UNK
     Dates: start: 20000101, end: 20100101
  23. ZEGERID [Concomitant]
     Dosage: UNK
     Dates: start: 20050101, end: 20080101
  24. CLINDAMYCIN [Concomitant]
     Dosage: UNK
     Dates: start: 20000101, end: 20100101

REACTIONS (3)
  - CHOLECYSTECTOMY [None]
  - CHOLELITHIASIS [None]
  - CHOLECYSTITIS CHRONIC [None]
